FAERS Safety Report 5985214-1 (Version None)
Quarter: 2008Q4

REPORT INFORMATION
  Report Type: 
  Country: None (occurrence: None)
  Receive Date: 20081203
  Receipt Date: 20081119
  Transmission Date: 20090506
  Serious: Yes (Death)
  Sender: FDA-Public Use
  Company Number: KV200800333

PATIENT
  Age: 71 Year
  Sex: Male

DRUGS (1)
  1. MORPHINE SULFATE [Suspect]
     Indication: PAIN IN EXTREMITY
     Dosage: 15 MG ONE TAB BID ORAL
     Route: 048
     Dates: end: 20080301

REACTIONS (3)
  - CARDIAC FAILURE [None]
  - DISEASE PROGRESSION [None]
  - PRODUCT QUALITY ISSUE [None]
